FAERS Safety Report 7808937-8 (Version None)
Quarter: 2011Q4

REPORT INFORMATION
  Report Type: 
  Country: None (occurrence: None)
  Receive Date: 20111012
  Receipt Date: 20111003
  Transmission Date: 20120403
  Serious: Yes (Death)
  Sender: FDA-Public Use
  Company Number: US-NAPPMUNDI-USA-2011-0074569

PATIENT
  Sex: Female

DRUGS (2)
  1. BUTRANS [Suspect]
     Indication: PAIN
  2. BUTRANS [Suspect]
     Indication: ANALGESIC THERAPY
     Dosage: 5 MCG/HR, UNK
     Dates: start: 20110830

REACTIONS (1)
  - NEOPLASM MALIGNANT [None]
